FAERS Safety Report 4499759-7 (Version None)
Quarter: 2004Q4

REPORT INFORMATION
  Report Type: 
  Country: None (occurrence: None)
  Receive Date: 20041112
  Receipt Date: 20041101
  Transmission Date: 20050328
  Serious: Yes (Other)
  Sender: FDA-Public Use
  Company Number: JP-SOLVAY-00304003962

PATIENT
  Age: 24789 Day
  Sex: Male
  Weight: 44.7 kg

DRUGS (8)
  1. MILLACT [Concomitant]
     Indication: DIARRHOEA
     Dosage: DAILY DOSE: 3 GRAM(S)
     Route: 048
     Dates: end: 19980203
  2. CREON [Suspect]
     Indication: PANCREATIC ENZYMES ABNORMAL
     Dosage: DAILY DOSE: 6 GRAM(S)
     Route: 048
     Dates: start: 19970203, end: 19980203
  3. CALCIUM LACTATE [Concomitant]
     Indication: CALCIUM DEFICIENCY
     Dosage: DAILY DOSE: 3 GRAM(S)
     Route: 048
     Dates: end: 19980203
  4. FERROMIA [Concomitant]
     Indication: ANAEMIA
     Dosage: DAILY DOSE: 150 MILLIGRAM(S)
     Route: 048
     Dates: end: 19980203
  5. ONEALFA [Concomitant]
     Indication: CALCIUM DEFICIENCY
     Dosage: DAILY DOSE: 1.5 MICROGRAM(S)
     Route: 048
     Dates: end: 19980203
  6. CYANOCOBALAMIN [Concomitant]
     Indication: ANAEMIA
     Dosage: DAILY DOSE: 750 MILLIGRAM(S)
     Route: 048
     Dates: end: 19980203
  7. OPIUM TINCTURE [Concomitant]
     Indication: DIARRHOEA
     Dosage: DAILY DOSE: 6 MILLILITRE(S)
     Route: 048
     Dates: end: 19980203
  8. ELENTAL [Concomitant]
     Indication: NUTRITIONAL SUPPORT
     Dosage: DAILY DOSE: 4 DOSAGE FORM
     Route: 054
     Dates: end: 19980203

REACTIONS (7)
  - CANDIDA SEROLOGY POSITIVE [None]
  - CATHETER RELATED INFECTION [None]
  - NAUSEA [None]
  - PULMONARY OEDEMA [None]
  - SEPSIS [None]
  - TACHYCARDIA [None]
  - VOMITING [None]
